FAERS Safety Report 10045040 (Version 1)
Quarter: 2014Q1

REPORT INFORMATION
  Report Type: Spontaneous
  Country: GB (occurrence: None)
  Receive Date: 20140326
  Receipt Date: 20140326
  Transmission Date: 20141002
  Serious: Yes (Life-Threatening)
  Sender: FDA-Public Use
  Company Number: GB2014K0827SPO

PATIENT
  Age: 69 Year
  Sex: Male

DRUGS (4)
  1. LANSOPRAZOLE [Suspect]
     Indication: HELICOBACTER INFECTION
     Dosage: 18 DAYS, 30 MG, UNK, ORAL
     Route: 048
     Dates: start: 20140211, end: 20140228
  2. AMOXICILLIN (AMOXYCILLIN) [Concomitant]
  3. CLARITHROMYCIN (CLARITHROMYCIN) [Concomitant]
  4. INDAPAMIDE (INDAPAMIDE) [Concomitant]

REACTIONS (1)
  - Suicidal ideation [None]
